FAERS Safety Report 13427869 (Version 1)
Quarter: 2017Q2

REPORT INFORMATION
  Report Type: Report from Study
  Country: US (occurrence: US)
  Receive Date: 20170411
  Receipt Date: 20170411
  Transmission Date: 20170830
  Serious: Yes (Death)
  Sender: FDA-Public Use
  Company Number: US-PFIZER INC-2017127681

PATIENT
  Sex: Female

DRUGS (7)
  1. PEGYLATED LIPOSOMAL DOXORUBICIN [Suspect]
     Active Substance: DOXORUBICIN
     Indication: OVARIAN CANCER RECURRENT
     Dosage: 30 MG/M2, CYCLIC
     Route: 042
  2. BEVACIZUMAB [Suspect]
     Active Substance: BEVACIZUMAB
     Indication: OVARIAN CANCER RECURRENT
     Dosage: UNK, CYCLIC (ON DAYS 1 AND 15)
  3. CARBOPLATIN. [Suspect]
     Active Substance: CARBOPLATIN
     Indication: OVARIAN CANCER RECURRENT
     Dosage: UNK, CYCLIC (AUC 5)
     Route: 042
  4. VELIPARIB [Suspect]
     Active Substance: VELIPARIB
     Indication: OVARIAN CANCER RECURRENT
     Dosage: 50 MG, CYCLIC
     Route: 048
  5. VELIPARIB [Suspect]
     Active Substance: VELIPARIB
     Dosage: 80 MG, CYCLIC
     Route: 048
  6. VELIPARIB [Suspect]
     Active Substance: VELIPARIB
     Dosage: 120 MG, CYCLIC
     Route: 048
  7. VELIPARIB [Suspect]
     Active Substance: VELIPARIB
     Dosage: UNK, 2X/DAY(CYCLE, ON DAYS 1-7 ON THE INTERMITTENT ARM AND ON DAYS 1-28 ON THE CONTINUOUS ARM)
     Route: 048

REACTIONS (1)
  - Sepsis [Fatal]
